FAERS Safety Report 5624967-9 (Version None)
Quarter: 2008Q1

REPORT INFORMATION
  Report Type: 
  Country: None (occurrence: None)
  Receive Date: 20080213
  Receipt Date: 20080208
  Transmission Date: 20080703
  Serious: Yes (Other)
  Sender: FDA-Public Use
  Company Number: US-ALLERGAN-0713095US

PATIENT
  Sex: Female

DRUGS (2)
  1. ALPHAGAN P [Suspect]
     Indication: GLAUCOMA
     Dosage: 1 GTT, BID
     Route: 047
     Dates: start: 20070201
  2. ALPHAGAN P [Suspect]
     Dosage: 1 GTT, BID
     Route: 047
     Dates: start: 20071221, end: 20080118

REACTIONS (6)
  - DRY EYE [None]
  - ERYTHEMA OF EYELID [None]
  - EYE INFLAMMATION [None]
  - EYE PAIN [None]
  - OCULAR HYPERAEMIA [None]
  - SCLERAL DISORDER [None]
